FAERS Safety Report 20682331 (Version 2)
Quarter: 2022Q2

REPORT INFORMATION
  Report Type: Spontaneous
  Country: US (occurrence: None)
  Receive Date: 20220407
  Receipt Date: 20220512
  Transmission Date: 20220721
  Serious: Yes (Hospitalization)
  Sender: FDA-Public Use
  Company Number: 2022A130818

PATIENT
  Age: 81 Year
  Sex: Male
  Weight: 88.5 kg

DRUGS (1)
  1. BUDESONIDE\FORMOTEROL\GLYCOPYRRONIUM [Suspect]
     Active Substance: BUDESONIDE\FORMOTEROL\GLYCOPYRRONIUM
     Indication: Chronic obstructive pulmonary disease
     Dosage: 160 MCG/ 9 MCG/ 4.8 MCG, TWO TIMES A DAY
     Route: 055
     Dates: start: 2021

REACTIONS (4)
  - Hernia [Unknown]
  - Pericardial effusion [Unknown]
  - Wrong technique in device usage process [Not Recovered/Not Resolved]
  - Device delivery system issue [Unknown]

NARRATIVE: CASE EVENT DATE: 20210101
